FAERS Safety Report 9481910 (Version 2)
Quarter: 2013Q3

REPORT INFORMATION
  Report Type: Spontaneous
  Country: AU (occurrence: AU)
  Receive Date: 20130828
  Receipt Date: 20130828
  Transmission Date: 20140515
  Serious: Yes (Hospitalization, Other)
  Sender: FDA-Public Use
  Company Number: AU-BRISTOL-MYERS SQUIBB COMPANY-16283343

PATIENT
  Age: 70 Year
  Sex: Female

DRUGS (1)
  1. IPILIMUMAB [Suspect]
     Indication: METASTATIC MALIGNANT MELANOMA
     Dosage: TOTAL DOSE:192MG.3MG/KG 1/Q21D*4; CYCLE 3 DELAYED BY TWO WEEKS.
     Route: 042
     Dates: start: 20111021

REACTIONS (3)
  - Gastric ulcer haemorrhage [Unknown]
  - Malignant neoplasm progression [Unknown]
  - Rash [Recovered/Resolved]
